FAERS Safety Report 7304352-4 (Version None)
Quarter: 2011Q1

REPORT INFORMATION
  Report Type: 
  Country: None (occurrence: None)
  Receive Date: 20110221
  Receipt Date: 20110214
  Transmission Date: 20110831
  Serious: Yes (Hospitalization)
  Sender: FDA-Public Use
  Company Number: BR-ELI_LILLY_AND_COMPANY-BR201011003805

PATIENT
  Sex: Male

DRUGS (9)
  1. LOVAZA [Concomitant]
     Dosage: UNK, UNKNOWN
     Route: 065
  2. CLOPIDOGREL [Concomitant]
     Dosage: UNK, UNKNOWN
     Route: 065
  3. ATENOLOL [Concomitant]
     Dosage: UNK, UNKNOWN
     Route: 065
  4. METFORMIN HYDROCHLORIDE [Concomitant]
     Dosage: UNK, UNKNOWN
     Route: 065
  5. SUSTRATE [Concomitant]
     Dosage: UNK, UNKNOWN
     Route: 065
  6. GLYBURIDE [Concomitant]
     Dosage: UNK, UNKNOWN
     Route: 065
  7. ACTOS [Concomitant]
     Dosage: 30 MG, UNKNOWN
     Route: 065
  8. BYETTA [Suspect]
     Dosage: 10 UG, 3/D
     Route: 065
     Dates: start: 20100401
  9. LIPITOR [Concomitant]
     Dosage: UNK, UNKNOWN
     Route: 065

REACTIONS (5)
  - CORONARY ARTERIAL STENT INSERTION [None]
  - OVERDOSE [None]
  - MYOCARDIAL INFARCTION [None]
  - BLOOD GLUCOSE ABNORMAL [None]
  - DRUG INEFFECTIVE [None]
